FAERS Safety Report 16914354 (Version 3)
Quarter: 2019Q4

REPORT INFORMATION
  Report Type: Spontaneous
  Country: US (occurrence: US)
  Receive Date: 20191014
  Receipt Date: 20191210
  Transmission Date: 20200122
  Serious: No
  Sender: FDA-Public Use
  Company Number: US-PFIZER INC-2019441581

PATIENT

DRUGS (4)
  1. CHANTIX [Suspect]
     Active Substance: VARENICLINE TARTRATE
     Dosage: 0.5 DF, 1X/DAY(1/2 TABLET ONCE A DAY), [ (1/2/DAY)]
  2. CHANTIX [Suspect]
     Active Substance: VARENICLINE TARTRATE
     Dosage: 0.5 DF, 2X/DAY (1/2 IN THE AM  AND 1/2 IN THE PM)
  3. CHANTIX [Suspect]
     Active Substance: VARENICLINE TARTRATE
     Dosage: 1.5 DF, DAILY (1 IN THE AM  AND 1/2 IN THE PM)
  4. CHANTIX [Suspect]
     Active Substance: VARENICLINE TARTRATE
     Dosage: UNK, 1X/DAY (TOOK 1/DAY)

REACTIONS (2)
  - Palpitations [Unknown]
  - Drug ineffective [Unknown]
